FAERS Safety Report 23111429 (Version 1)
Quarter: 2023Q4

REPORT INFORMATION
  Report Type: Spontaneous
  Country: US (occurrence: US)
  Receive Date: 20231026
  Receipt Date: 20231026
  Transmission Date: 20240109
  Serious: No
  Sender: FDA-Public Use
  Company Number: US-ELI_LILLY_AND_COMPANY-US202310014985

PATIENT
  Sex: Female

DRUGS (6)
  1. HUMULIN R U-500 [Suspect]
     Active Substance: INSULIN HUMAN
     Indication: Type 2 diabetes mellitus
     Dosage: 60 U, EACH MORNING (10 AM)
     Route: 058
     Dates: start: 2003
  2. HUMULIN R U-500 [Suspect]
     Active Substance: INSULIN HUMAN
     Indication: Type 2 diabetes mellitus
     Dosage: 60 U, EACH MORNING (10 AM)
     Route: 058
     Dates: start: 2003
  3. HUMULIN R U-500 [Suspect]
     Active Substance: INSULIN HUMAN
     Dosage: 35 U, EACH EVENING (5 PM)
     Route: 058
     Dates: start: 2003
  4. HUMULIN R U-500 [Suspect]
     Active Substance: INSULIN HUMAN
     Dosage: 35 U, EACH EVENING (5 PM)
     Route: 058
     Dates: start: 2003
  5. HUMULIN R U-500 [Suspect]
     Active Substance: INSULIN HUMAN
     Dosage: 20 U, EACH EVENING (10 PM)
     Route: 058
     Dates: start: 2003
  6. HUMULIN R U-500 [Suspect]
     Active Substance: INSULIN HUMAN
     Dosage: 20 U, EACH EVENING (10 PM)
     Route: 058
     Dates: start: 2003

REACTIONS (1)
  - Incorrect dose administered [Not Recovered/Not Resolved]
